FAERS Safety Report 12587955 (Version 3)
Quarter: 2016Q3

REPORT INFORMATION
  Report Type: Report from Study
  Country: US (occurrence: US)
  Receive Date: 20160725
  Receipt Date: 20160728
  Transmission Date: 20161109
  Serious: Yes (Other)
  Sender: FDA-Public Use
  Company Number: US-BIOGEN-2015BI000312

PATIENT
  Age: 51 Year
  Sex: Female

DRUGS (3)
  1. TECFIDERA [Suspect]
     Active Substance: DIMETHYL FUMARATE
     Route: 065
     Dates: start: 20131227, end: 20140201
  2. TECFIDERA [Suspect]
     Active Substance: DIMETHYL FUMARATE
     Indication: MULTIPLE SCLEROSIS
     Dosage: STARTING DOSE
     Route: 048
     Dates: start: 20131226
  3. TECFIDERA [Suspect]
     Active Substance: DIMETHYL FUMARATE
     Route: 048
     Dates: end: 20140201

REACTIONS (21)
  - Pancreatitis [Recovered/Resolved]
  - Peripheral swelling [Unknown]
  - Flank pain [Recovered/Resolved]
  - Urinary retention [Unknown]
  - Memory impairment [Not Recovered/Not Resolved]
  - Feeding disorder [Recovered/Resolved]
  - Hepatic enzyme increased [Recovered/Resolved]
  - Fatigue [Unknown]
  - Vision blurred [Unknown]
  - Hyperchlorhydria [Recovered/Resolved]
  - Gastrointestinal pain [Recovered/Resolved]
  - Blindness [Unknown]
  - Diplopia [Recovered/Resolved]
  - Drug effect decreased [Unknown]
  - Headache [Recovered/Resolved]
  - Arthralgia [Unknown]
  - General symptom [Unknown]
  - Pancreatic haemorrhage [Recovered/Resolved]
  - Weight increased [Unknown]
  - Photopsia [Recovered/Resolved]
  - Multiple sclerosis relapse [Unknown]

NARRATIVE: CASE EVENT DATE: 20131227
